FAERS Safety Report 4273335-3 (Version None)
Quarter: 2004Q1

REPORT INFORMATION
  Report Type: 
  Country: None (occurrence: None)
  Receive Date: 20040115
  Receipt Date: 20040115
  Transmission Date: 20041129
  Serious: No
  Sender: FDA-Public Use
  Company Number: None

PATIENT
  Age: 73 Year
  Sex: Male

DRUGS (1)
  1. COLESTID [Suspect]
     Indication: HYPERCHOLESTEROLAEMIA
     Dosage: 2 GM PO BID
     Route: 048

REACTIONS (3)
  - CONSTIPATION [None]
  - EAR PAIN [None]
  - PAIN [None]
